FAERS Safety Report 8820652 (Version 1)
Quarter: 2012Q4

REPORT INFORMATION
  Report Type: 
  Country: US (occurrence: US)
  Receive Date: 20121002
  Receipt Date: 20121002
  Transmission Date: 20130627
  Serious: Yes (Other)
  Sender: FDA-Public Use
  Company Number: US-JNJFOC-20120912224

PATIENT
  Sex: Male

DRUGS (1)
  1. XARELTO [Suspect]
     Indication: PRODUCT USED FOR UNKNOWN INDICATION
     Dosage: took for 7 days
     Route: 048

REACTIONS (4)
  - Abnormal behaviour [Not Recovered/Not Resolved]
  - Nausea [Unknown]
  - Physical assault [Recovered/Resolved]
  - Feeling abnormal [Unknown]
